FAERS Safety Report 6451606-X (Version None)
Quarter: 2009Q4

REPORT INFORMATION
  Report Type: 
  Country: None (occurrence: None)
  Receive Date: 20091123
  Receipt Date: 20091109
  Transmission Date: 20100525
  Serious: Yes (Hospitalization, Other)
  Sender: FDA-Public Use
  Company Number: PHHY2009JP47064

PATIENT
  Age: 35 Year
  Sex: Female

DRUGS (8)
  1. CYCLOSPORINE [Suspect]
     Indication: PUSTULAR PSORIASIS
     Dosage: 125 MG DAILY
     Route: 048
     Dates: start: 20080901
  2. CYCLOSPORINE [Suspect]
     Dosage: 225 MG DAILY
     Route: 048
     Dates: start: 20090101
  3. CYCLOSPORINE [Suspect]
     Dosage: 275 MG DAILY
     Route: 048
  4. CYCLOSPORINE [Suspect]
     Dosage: 225 MG DAILY
     Route: 048
     Dates: start: 20090201
  5. PREDNISOLONE [Concomitant]
     Indication: PUSTULAR PSORIASIS
     Dosage: 30 MG DAILY
     Route: 048
  6. PREDNISOLONE [Concomitant]
     Dosage: 50 MG DAILY
     Route: 048
  7. PREDNISOLONE [Concomitant]
     Dosage: 35 MG DAILY
     Route: 048
     Dates: start: 20090201
  8. PREDNISOLONE [Concomitant]
     Dosage: 10 MG DAILY
     Route: 048

REACTIONS (7)
  - DRUG EXPOSURE DURING PREGNANCY [None]
  - ERYTHEMA [None]
  - HYPERKERATOSIS [None]
  - HYPERTHERMIA [None]
  - OEDEMA PERIPHERAL [None]
  - PSORIASIS [None]
  - PYREXIA [None]
